FAERS Safety Report 6963244-0 (Version None)
Quarter: 2010Q3

REPORT INFORMATION
  Report Type: 
  Country: None (occurrence: None)
  Receive Date: 20100902
  Receipt Date: 20100825
  Transmission Date: 20110219
  Serious: Yes (Death, Other)
  Sender: FDA-Public Use
  Company Number: IT-MILLENNIUM PHARMACEUTICALS, INC.-2010-04512

PATIENT

DRUGS (2)
  1. VELCADE [Suspect]
     Indication: MULTIPLE MYELOMA
     Dosage: 1.3 MG/M2, UNK
     Route: 042
     Dates: start: 20100805, end: 20100805
  2. CORTICOSTEROIDS [Concomitant]

REACTIONS (3)
  - ARRHYTHMIA SUPRAVENTRICULAR [None]
  - CARDIOGENIC SHOCK [None]
  - PULMONARY CONGESTION [None]
